FAERS Safety Report 10897637 (Version 1)
Quarter: 2015Q1

REPORT INFORMATION
  Report Type: Spontaneous
  Country: US (occurrence: US)
  Receive Date: 20150309
  Receipt Date: 20150309
  Transmission Date: 20150721
  Serious: No
  Sender: FDA-Public Use
  Company Number: US-PFIZER INC-2015079024

PATIENT
  Age: 77 Year
  Sex: Female
  Weight: 43.99 kg

DRUGS (7)
  1. LYRICA [Suspect]
     Active Substance: PREGABALIN
     Indication: HERPES ZOSTER
     Dosage: 50 MG, 2X/DAY
     Dates: start: 20150123
  2. LYRICA [Suspect]
     Active Substance: PREGABALIN
     Dosage: 50MG IN MORNING AND 75MG IN NIGHT
  3. SYNTHROID [Concomitant]
     Active Substance: LEVOTHYROXINE SODIUM
     Indication: THYROID DISORDER
     Dosage: 50 MG, 1X/DAY (50 MG JUST ONCE IN THE MORNING JUST HALF HOUR BEFORE SHE EAT)
  4. IPRATROPIUM [Concomitant]
     Active Substance: IPRATROPIUM
     Indication: FLUID IMBALANCE
     Dosage: UNK, 2X/DAY (0.3 SPRAY TWICE A DAY)
     Dates: start: 20150214
  5. CALTRATE 600+D [Concomitant]
     Indication: BONE DISORDER
     Dosage: UNK, 2X/DAY
  6. BONIVA [Concomitant]
     Active Substance: IBANDRONATE SODIUM
     Indication: BONE DENSITY DECREASED
     Dosage: UNK, EVERY 3 MONTHS
  7. BABY ASPIRIN [Concomitant]
     Active Substance: ASPIRIN
     Indication: BLOOD PRESSURE FLUCTUATION
     Dosage: UNK, 1X/DAY (ONCE DAILY)

REACTIONS (5)
  - Dizziness [Unknown]
  - Frequent bowel movements [Not Recovered/Not Resolved]
  - Drug ineffective [Unknown]
  - Muscle spasms [Unknown]
  - Pain [Unknown]

NARRATIVE: CASE EVENT DATE: 20150227
